FAERS Safety Report 10607462 (Version 3)
Quarter: 2015Q1

REPORT INFORMATION
  Report Type: Spontaneous
  Country: BR (occurrence: BR)
  Receive Date: 20141125
  Receipt Date: 20150116
  Transmission Date: 20150720
  Serious: Yes (Death, Hospitalization, Other)
  Sender: FDA-Public Use
  Company Number: BR-PFIZER INC-2014296653

PATIENT
  Age: 47 Year
  Sex: Female
  Weight: 47 kg

DRUGS (3)
  1. SUTENT [Suspect]
     Active Substance: SUNITINIB MALATE
     Indication: RENAL CELL CARCINOMA
     Dosage: 50 MG, CYCLIC (4 WEEKS ON AND 2 WEEKS OFF)
     Route: 048
     Dates: start: 20140929
  2. OMEPRAZOLE. [Concomitant]
     Active Substance: OMEPRAZOLE
     Indication: ABDOMINAL DISCOMFORT
     Dosage: UNK
  3. MINERAL OIL. [Concomitant]
     Active Substance: MINERAL OIL
     Dosage: UNK

REACTIONS (17)
  - Vomiting [Recovered/Resolved]
  - Mouth ulceration [Unknown]
  - Urinary tract infection [Unknown]
  - Blood glucose fluctuation [Unknown]
  - Anaemia [Fatal]
  - Renal cell carcinoma [Fatal]
  - Dyspnoea [Unknown]
  - Blood urine present [Unknown]
  - Oropharyngeal pain [Unknown]
  - Thyroid disorder [Unknown]
  - Dizziness [Recovered/Resolved]
  - Dysstasia [Unknown]
  - Nausea [Recovered/Resolved]
  - Asthenia [Unknown]
  - Disease progression [Fatal]
  - Haemorrhage [Unknown]
  - Decreased appetite [Unknown]

NARRATIVE: CASE EVENT DATE: 2014
